FAERS Safety Report 4752234-4 (Version None)
Quarter: 2005Q3

REPORT INFORMATION
  Report Type: 
  Country: None (occurrence: None)
  Receive Date: 20050825
  Receipt Date: 20001218
  Transmission Date: 20060218
  Serious: No
  Sender: FDA-Public Use
  Company Number: US-GLAXOSMITHKLINE-A0136971A

PATIENT
  Age: 69 Year
  Sex: Female
  Weight: 67.7 kg

DRUGS (1)
  1. LOTRONEX [Suspect]
     Dosage: 1MG TWICE PER DAY
     Route: 048
     Dates: start: 20000526, end: 20000101

REACTIONS (1)
  - CONSTIPATION [None]
